FAERS Safety Report 22107170 (Version 3)
Quarter: 2023Q2

REPORT INFORMATION
  Report Type: Spontaneous
  Country: US (occurrence: US)
  Receive Date: 20230317
  Receipt Date: 20230612
  Transmission Date: 20230722
  Serious: No
  Sender: FDA-Public Use
  Company Number: US-SA-SAC20230310000626

PATIENT
  Age: 5 Year
  Sex: Male

DRUGS (1)
  1. DUPIXENT [Suspect]
     Active Substance: DUPILUMAB
     Indication: Dermatitis atopic
     Dosage: 300 MG, OTHER
     Route: 058

REACTIONS (6)
  - Injection site pain [Unknown]
  - Lacrimation increased [Not Recovered/Not Resolved]
  - Cough [Unknown]
  - Ocular hyperaemia [Recovered/Resolved]
  - Eye irritation [Not Recovered/Not Resolved]
  - Eye pruritus [Recovered/Resolved]
